FAERS Safety Report 19666273 (Version 1)
Quarter: 2021Q3

REPORT INFORMATION
  Report Type: Spontaneous
  Country: PL (occurrence: PL)
  Receive Date: 20210806
  Receipt Date: 20210806
  Transmission Date: 20211014
  Serious: Yes (Other)
  Sender: FDA-Public Use
  Company Number: PL-TELIGENT, INC-20210800070

PATIENT
  Age: 73 Year
  Sex: Male

DRUGS (3)
  1. AMIKACIN. [Suspect]
     Active Substance: AMIKACIN
     Indication: INFECTION
     Dosage: UNK, UNKNOWN
     Route: 033
  2. CIPROFLOXACIN UNSPECIFIED [Concomitant]
     Active Substance: CIPROFLOXACIN
     Indication: INFECTION
     Dosage: UNK, UNKNOWN
     Route: 048
  3. GENTAMICIN UNSPECIFIED [Suspect]
     Active Substance: GENTAMICIN
     Indication: INFECTION
     Dosage: UNK, UNKNOWN
     Route: 061

REACTIONS (1)
  - Neurotoxicity [Recovered/Resolved]
